FAERS Safety Report 10053201 (Version 1)
Quarter: 2014Q2

REPORT INFORMATION
  Report Type: Spontaneous
  Country: US (occurrence: US)
  Receive Date: 20140402
  Receipt Date: 20140402
  Transmission Date: 20141212
  Serious: Yes (Hospitalization)
  Sender: FDA-Public Use
  Company Number: US-GLAXOSMITHKLINE-A1066718A

PATIENT
  Age: 72 Year
  Sex: Male

DRUGS (9)
  1. ADVAIR [Suspect]
     Indication: CHRONIC OBSTRUCTIVE PULMONARY DISEASE
     Dosage: 1PUFF TWICE PER DAY
  2. COMBIVENT [Concomitant]
  3. LOPRESSOR [Concomitant]
  4. OMEPRAZOL [Concomitant]
  5. SIMVASTATIN [Concomitant]
  6. TRAMADOL [Concomitant]
  7. PLAVIX [Concomitant]
  8. ASPIRIN [Concomitant]
  9. DIFLUCAN [Concomitant]

REACTIONS (3)
  - Candida infection [Not Recovered/Not Resolved]
  - Ataxia [Not Recovered/Not Resolved]
  - Dyspnoea [Not Recovered/Not Resolved]
